FAERS Safety Report 11329593 (Version 1)
Quarter: 2015Q3

REPORT INFORMATION
  Report Type: Spontaneous
  Country: GB (occurrence: GB)
  Receive Date: 20150803
  Receipt Date: 20150803
  Transmission Date: 20151125
  Serious: Yes (Death, Hospitalization)
  Sender: FDA-Public Use
  Company Number: GB-TEVA-583404ISR

PATIENT
  Age: 76 Year
  Sex: Male

DRUGS (3)
  1. PREDNISOLONE. [Suspect]
     Active Substance: PREDNISOLONE
     Indication: SWELLING
     Dosage: 7.5 MILLIGRAM DAILY;
     Route: 065
  2. PREDNISOLONE. [Suspect]
     Active Substance: PREDNISOLONE
     Indication: ARTHRALGIA
     Dosage: 15 MILLIGRAM DAILY;
     Route: 065
  3. PREDNISOLONE. [Suspect]
     Active Substance: PREDNISOLONE
     Dosage: 20 MILLIGRAM DAILY;
     Route: 065

REACTIONS (17)
  - Dyspnoea [Unknown]
  - Cough [Unknown]
  - Acute kidney injury [Unknown]
  - Pancreatitis [Unknown]
  - Hypertension [Unknown]
  - Pneumonia [Unknown]
  - Oedema [Unknown]
  - Malaise [Unknown]
  - Scleroderma renal crisis [Unknown]
  - Fluid overload [Unknown]
  - Venous pressure jugular increased [Unknown]
  - Pleural effusion [Unknown]
  - Peritonitis [Unknown]
  - Atrial fibrillation [Unknown]
  - Crepitations [Unknown]
  - Peripheral swelling [Unknown]
  - Multi-organ failure [Fatal]
